FAERS Safety Report 25808003 (Version 1)
Quarter: 2025Q3

REPORT INFORMATION
  Report Type: Spontaneous
  Country: US (occurrence: US)
  Receive Date: 20250916
  Receipt Date: 20250916
  Transmission Date: 20251020
  Serious: No
  Sender: Alora Pharma
  Company Number: US-OSMOTICA PHARMACEUTICALS-2024ALO00461

PATIENT
  Age: 51 Year
  Sex: Male

DRUGS (1)
  1. METHYLPHENIDATE HYDROCHLORIDE [Suspect]
     Active Substance: METHYLPHENIDATE HYDROCHLORIDE
     Indication: Fatigue
     Dosage: 36 MG, 1X/DAY
     Dates: start: 202405, end: 2024

REACTIONS (4)
  - Anxiety [Unknown]
  - Unevaluable event [Unknown]
  - Therapeutic response shortened [Unknown]
  - Product use in unapproved indication [Recovered/Resolved]

NARRATIVE: CASE EVENT DATE: 20240501
